FAERS Safety Report 23365616 (Version 1)
Quarter: 2024Q1

REPORT INFORMATION
  Report Type: Spontaneous
  Country: US (occurrence: US)
  Receive Date: 20240104
  Receipt Date: 20240104
  Transmission Date: 20240410
  Serious: Yes (Other)
  Sender: FDA-Public Use
  Company Number: US-GTI-000054

PATIENT
  Age: 35 Year
  Sex: Female

DRUGS (8)
  1. PREDNISONE [Suspect]
     Active Substance: PREDNISONE
     Indication: Systemic lupus erythematosus
     Route: 065
  2. HYDROXYCHLOROQUINE [Suspect]
     Active Substance: HYDROXYCHLOROQUINE
     Indication: Systemic lupus erythematosus
     Route: 065
  3. MYCOPHENOLATE MOFETIL [Suspect]
     Active Substance: MYCOPHENOLATE MOFETIL
     Indication: Systemic lupus erythematosus
     Route: 065
  4. METHOTREXATE [Suspect]
     Active Substance: METHOTREXATE
     Indication: Systemic lupus erythematosus
     Route: 065
  5. CLOBETASOL [Suspect]
     Active Substance: CLOBETASOL
     Indication: Systemic lupus erythematosus
     Route: 065
  6. QUINACRINE [Suspect]
     Active Substance: QUINACRINE
     Indication: Systemic lupus erythematosus
     Route: 065
  7. DIPYRIDAMOLE [Suspect]
     Active Substance: DIPYRIDAMOLE
     Indication: Systemic lupus erythematosus
     Route: 065
  8. SODIUM THIOSULFATE [Suspect]
     Active Substance: SODIUM THIOSULFATE
     Indication: Systemic lupus erythematosus
     Route: 061

REACTIONS (7)
  - Systemic lupus erythematosus [Recovering/Resolving]
  - Chronic cutaneous lupus erythematosus [Recovering/Resolving]
  - Cutaneous calcification [Recovered/Resolved]
  - Lupus nephritis [Unknown]
  - Alopecia [Unknown]
  - Multiple-drug resistance [Unknown]
  - Arthralgia [Unknown]
